FAERS Safety Report 23804719 (Version 1)
Quarter: 2024Q2

REPORT INFORMATION
  Report Type: Spontaneous
  Country: CN (occurrence: CN)
  Receive Date: 20240501
  Receipt Date: 20240501
  Transmission Date: 20240715
  Serious: Yes (Other)
  Sender: FDA-Public Use
  Company Number: CN-TAKEDA-2024TUS039184

PATIENT
  Sex: Female
  Weight: 62.5 kg

DRUGS (2)
  1. ADCETRIS [Suspect]
     Active Substance: BRENTUXIMAB VEDOTIN
     Indication: Hodgkin^s disease
     Dosage: 80 MILLIGRAM, QD
     Route: 041
     Dates: start: 20240304, end: 20240304
  2. SODIUM CHLORIDE [Concomitant]
     Active Substance: SODIUM CHLORIDE
     Indication: Hodgkin^s disease
     Dosage: 100 MILLILITER, QD
     Route: 041
     Dates: start: 20240304, end: 20240304

REACTIONS (4)
  - Flushing [Recovered/Resolved]
  - Chest discomfort [Recovered/Resolved]
  - Blood pressure increased [Recovered/Resolved]
  - Tachycardia [Recovered/Resolved]
